FAERS Safety Report 5063191-8 (Version None)
Quarter: 2006Q3

REPORT INFORMATION
  Report Type: 
  Country: None (occurrence: None)
  Receive Date: 20060724
  Receipt Date: 20060717
  Transmission Date: 20061208
  Serious: Yes (Death)
  Sender: FDA-Public Use
  Company Number: USA-2006-0024020

PATIENT
  Age: 42 Year
  Sex: Male
  Weight: 78.5 kg

DRUGS (5)
  1. OXCONTIN [Suspect]
     Indication: PAIN
     Dosage: MG, QID
  2. METHADONE HCL [Suspect]
     Indication: DRUG USE FOR UNKNOWN INDICATION
  3. BENZODIAZEPINE DERIVATIVES [Suspect]
     Indication: DRUG USE FOR UNKNOWN INDICATION
  4. AVAPRO [Concomitant]
  5. HYDROCHLOROTHIAZIDE [Concomitant]

REACTIONS (5)
  - ACCIDENTAL DEATH [None]
  - CARDIO-RESPIRATORY ARREST [None]
  - DRUG TOXICITY [None]
  - MULTIPLE DRUG OVERDOSE [None]
  - SUBSTANCE ABUSE [None]
